FAERS Safety Report 23828318 (Version 1)
Quarter: 2024Q2

REPORT INFORMATION
  Report Type: Spontaneous
  Country: CN (occurrence: CN)
  Receive Date: 20240508
  Receipt Date: 20240508
  Transmission Date: 20240716
  Serious: Yes (Hospitalization, Other)
  Sender: FDA-Public Use
  Company Number: CN-ABBVIE-5741527

PATIENT
  Sex: Female
  Weight: 55 kg

DRUGS (1)
  1. ALPHAGAN P [Suspect]
     Active Substance: BRIMONIDINE TARTRATE
     Indication: Intraocular pressure increased
     Dosage: TIME INTERVAL: 0.33333333 DAYS: 3 DROP
     Route: 047
     Dates: start: 20240219, end: 20240422

REACTIONS (6)
  - Glaucoma [Unknown]
  - Eyelid irritation [Recovering/Resolving]
  - Erythema of eyelid [Recovering/Resolving]
  - Swelling of eyelid [Recovering/Resolving]
  - Therapeutic product effect incomplete [Unknown]
  - Glaucoma [Unknown]

NARRATIVE: CASE EVENT DATE: 20240101
